FAERS Safety Report 6004096-5 (Version None)
Quarter: 2008Q4

REPORT INFORMATION
  Report Type: 
  Country: None (occurrence: None)
  Receive Date: 20081215
  Receipt Date: 20081215
  Transmission Date: 20090506
  Serious: Yes (Other)
  Sender: FDA-Public Use
  Company Number: None

PATIENT
  Age: 55 Year
  Sex: Female
  Weight: 79.3795 kg

DRUGS (4)
  1. ZOLOFT 100 MG UNKNOWN- GENERIC [Suspect]
     Indication: ANXIETY
     Dosage: 25, 50, 75 AND 100 MG ONCE A DAY PO
     Route: 048
     Dates: start: 20080914, end: 20081102
  2. ZOLOFT 100 MG UNKNOWN- GENERIC [Suspect]
     Indication: DEPRESSION
     Dosage: 25, 50, 75 AND 100 MG ONCE A DAY PO
     Route: 048
     Dates: start: 20080914, end: 20081102
  3. ZOLOFT 100 MG UNKNOWN- GENERIC [Suspect]
     Indication: MENOPAUSE
     Dosage: 25, 50, 75 AND 100 MG ONCE A DAY PO
     Route: 048
     Dates: start: 20080914, end: 20081102
  4. ZOLOFT 100 MG UNKNOWN- GENERIC [Suspect]
     Indication: NEURALGIA
     Dosage: 25, 50, 75 AND 100 MG ONCE A DAY PO
     Route: 048
     Dates: start: 20080914, end: 20081102

REACTIONS (12)
  - BRONCHIAL IRRITATION [None]
  - CHEST PAIN [None]
  - COUGH [None]
  - DYSPEPSIA [None]
  - DYSPHAGIA [None]
  - OESOPHAGEAL DISORDER [None]
  - PAINFUL RESPIRATION [None]
  - PALPITATIONS [None]
  - PHARYNGEAL DISORDER [None]
  - SENSATION OF FOREIGN BODY [None]
  - THROAT IRRITATION [None]
  - VISION BLURRED [None]
